FAERS Safety Report 18989901 (Version 1)
Quarter: 2021Q1

REPORT INFORMATION
  Report Type: Spontaneous
  Country: US (occurrence: US)
  Receive Date: 20210310
  Receipt Date: 20210310
  Transmission Date: 20210420
  Serious: Yes (Hospitalization, Other)
  Sender: FDA-Public Use
  Company Number: US-DRREDDYS-USA/USA/21/0132625

PATIENT
  Age: 68 Year
  Sex: Female

DRUGS (3)
  1. ZICONOTIDE [Interacting]
     Active Substance: ZICONOTIDE
     Indication: BACK PAIN
     Dosage: THE INFUSION SCHEDULED INCLUDED AN INITIAL ZICONOTIDE RATE OF 2.4MCG/DAY, WITH AN INCREASE OF 1.2MCG
  2. FLUOXETINE [Suspect]
     Active Substance: FLUOXETINE HYDROCHLORIDE
     Indication: DEPRESSION
  3. ZICONOTIDE [Interacting]
     Active Substance: ZICONOTIDE
     Dosage: THE INFUSION SCHEDULED INCLUDED AN INITIAL ZICONOTIDE RATE OF 2.4MCG/DAY, WITH AN INCREASE OF 1.2MCG

REACTIONS (5)
  - Confusional state [Recovered/Resolved]
  - Drug interaction [Recovered/Resolved]
  - Toxicity to various agents [Recovered/Resolved]
  - Nystagmus [Recovered/Resolved]
  - Asthenia [Recovered/Resolved]
